FAERS Safety Report 24871489 (Version 1)
Quarter: 2025Q1

REPORT INFORMATION
  Report Type: Spontaneous
  Country: MY (occurrence: MY)
  Receive Date: 20250122
  Receipt Date: 20250122
  Transmission Date: 20250409
  Serious: Yes (Other)
  Sender: CURRAX PHARMACEUTICALS
  Company Number: MY-NALPROPION PHARMACEUTICALS INC.-MY-2025CUR000165

PATIENT
  Age: 31 Year
  Sex: Female
  Weight: 100 kg

DRUGS (1)
  1. CONTRAVE [Suspect]
     Active Substance: BUPROPION HYDROCHLORIDE\NALTREXONE HYDROCHLORIDE
     Indication: Weight control
     Route: 048
     Dates: start: 20241205, end: 20250109

REACTIONS (4)
  - Laryngeal haemorrhage [Recovering/Resolving]
  - Laryngeal haematoma [Recovering/Resolving]
  - Vascular rupture [Recovering/Resolving]
  - Headache [Recovering/Resolving]
